FAERS Safety Report 9813268 (Version 1)
Quarter: 2014Q1

REPORT INFORMATION
  Report Type: Spontaneous
  Country: US (occurrence: US)
  Receive Date: 20140113
  Receipt Date: 20140113
  Transmission Date: 20141002
  Serious: Yes (Hospitalization)
  Sender: FDA-Public Use
  Company Number: US-BAXTER-2014BAX001005

PATIENT
  Sex: Male

DRUGS (14)
  1. DIANEAL LOW CALCIUM [Suspect]
     Indication: PERITONEAL DIALYSIS
     Route: 033
     Dates: start: 2010
  2. DIANEAL LOW CALCIUM [Suspect]
     Route: 033
     Dates: start: 2010
  3. DIANEAL LOW CALCIUM [Suspect]
     Route: 033
     Dates: start: 201401
  4. DIANEAL LOW CALCIUM [Suspect]
     Route: 033
     Dates: start: 201401
  5. DIANEAL LOW CALCIUM [Suspect]
     Indication: PERITONEAL DIALYSIS
     Route: 033
     Dates: start: 2010
  6. DIANEAL LOW CALCIUM [Suspect]
     Route: 033
     Dates: start: 2010
  7. DIANEAL LOW CALCIUM [Suspect]
     Route: 033
     Dates: start: 201401
  8. DIANEAL LOW CALCIUM [Suspect]
     Route: 033
     Dates: start: 201401
  9. DIANEAL LOW CALCIUM (ULTRABAG) [Suspect]
     Indication: PERITONEAL DIALYSIS
     Route: 033
  10. DIANEAL LOW CALCIUM (ULTRABAG) [Suspect]
     Route: 033
  11. DIANEAL LOW CALCIUM (ULTRABAG) [Suspect]
     Indication: PERITONEAL DIALYSIS
     Route: 033
  12. DIANEAL LOW CALCIUM (ULTRABAG) [Suspect]
     Route: 033
  13. DIANEAL LOW CALCIUM (ULTRABAG) [Suspect]
     Indication: PERITONEAL DIALYSIS
     Route: 033
  14. DIANEAL LOW CALCIUM (ULTRABAG) [Suspect]
     Route: 033

REACTIONS (1)
  - Anaemia [Unknown]
